FAERS Safety Report 16214170 (Version 2)
Quarter: 2019Q2

REPORT INFORMATION
  Report Type: Spontaneous
  Country: US (occurrence: US)
  Receive Date: 20190418
  Receipt Date: 20190509
  Transmission Date: 20190711
  Serious: No
  Sender: FDA-Public Use
  Company Number: US-SA-2019SA104127

PATIENT
  Age: 43 Year
  Sex: Male
  Weight: 90.7 kg

DRUGS (1)
  1. ALLEGRA [Suspect]
     Active Substance: FEXOFENADINE HYDROCHLORIDE
     Dosage: UNK
     Dates: start: 20190401

REACTIONS (2)
  - Drug hypersensitivity [Unknown]
  - Agitation [Unknown]

NARRATIVE: CASE EVENT DATE: 20190401
